FAERS Safety Report 10685406 (Version 1)
Quarter: 2014Q4

REPORT INFORMATION
  Report Type: Spontaneous
  Country: US (occurrence: US)
  Receive Date: 20141231
  Receipt Date: 20141231
  Transmission Date: 20150529
  Serious: Yes (Death, Hospitalization)
  Sender: FDA-Public Use
  Company Number: US-BAXTER-2014BAX076831

PATIENT
  Age: 5 Month
  Sex: Male

DRUGS (3)
  1. TERBUTALINE [Suspect]
     Active Substance: TERBUTALINE
     Indication: RESPIRATORY FAILURE
     Route: 065
  2. FORANE [Suspect]
     Active Substance: ISOFLURANE
     Indication: RESPIRATORY FAILURE
     Route: 065
  3. EPINEPHRINE. [Suspect]
     Active Substance: EPINEPHRINE
     Indication: RESPIRATORY FAILURE
     Route: 065

REACTIONS (2)
  - No therapeutic response [Recovered/Resolved]
  - Disease complication [Fatal]
